FAERS Safety Report 12887532 (Version 2)
Quarter: 2017Q1

REPORT INFORMATION
  Report Type: Spontaneous
  Country: FR (occurrence: FR)
  Receive Date: 20161026
  Receipt Date: 20170111
  Transmission Date: 20170428
  Serious: Yes (Other)
  Sender: FDA-Public Use
  Company Number: FR-009507513-1610FRA011861

PATIENT
  Age: 70 Year
  Sex: Female
  Weight: 67 kg

DRUGS (3)
  1. DIPRIVAN [Concomitant]
     Active Substance: PROPOFOL
     Indication: STUPOR
     Dosage: UNK
     Route: 042
     Dates: start: 20161018
  2. SUFENTANIL [Concomitant]
     Active Substance: SUFENTANIL
     Indication: ANALGESIC THERAPY
     Dosage: UNK
     Route: 042
     Dates: start: 20161018
  3. ESMERON [Suspect]
     Active Substance: ROCURONIUM BROMIDE
     Indication: NEUROMUSCULAR BLOCKING THERAPY
     Dosage: 70 MG, ONCE
     Route: 042
     Dates: start: 20161018, end: 201610

REACTIONS (3)
  - Anaphylactic shock [Unknown]
  - Pruritus [Unknown]
  - Hypothermia [Unknown]

NARRATIVE: CASE EVENT DATE: 20161018
